FAERS Safety Report 6414148-3 (Version None)
Quarter: 2009Q4

REPORT INFORMATION
  Report Type: 
  Country: None (occurrence: None)
  Receive Date: 20091026
  Receipt Date: 20091014
  Transmission Date: 20100525
  Serious: Yes (Other)
  Sender: FDA-Public Use
  Company Number: JP-PFIZER INC-2009276977

PATIENT
  Age: 68 Year

DRUGS (4)
  1. ZITHROMAX [Suspect]
     Indication: PNEUMONIA
     Dosage: 250 MG, 2X/DAY
     Route: 048
     Dates: start: 20090828, end: 20090830
  2. MUCODYNE [Concomitant]
     Dosage: UNK
     Route: 048
     Dates: start: 20081104, end: 20090911
  3. ASTOMIN [Concomitant]
     Dosage: UNK
     Route: 048
     Dates: start: 20081104, end: 20090911
  4. GARENOXACIN MESILATE [Concomitant]
     Route: 048
     Dates: start: 20081104, end: 20090817

REACTIONS (2)
  - IRITIS [None]
  - VITREOUS OPACITIES [None]
